FAERS Safety Report 10077396 (Version 2)
Quarter: 2014Q2

REPORT INFORMATION
  Report Type: Spontaneous
  Country: US (occurrence: US)
  Receive Date: 20140414
  Receipt Date: 20140627
  Transmission Date: 20141212
  Serious: No
  Sender: FDA-Public Use
  Company Number: US-PFIZER INC-2014101466

PATIENT
  Age: 36 Year
  Sex: Female

DRUGS (4)
  1. RELPAX [Suspect]
     Indication: MIGRAINE
     Dosage: 40 MG, 1 TABLET DAILY AS NEEDED
     Route: 048
     Dates: start: 20060523
  2. JOLIVETTE [Concomitant]
     Dosage: 0.35 MG 1 QD
  3. PROPRANOLOL [Concomitant]
     Dosage: 40 MG, BID
     Route: 048
  4. TOPAMAX [Concomitant]
     Dosage: 100 UNK, BID

REACTIONS (1)
  - Pain [Unknown]
